FAERS Safety Report 7486699-4 (Version None)
Quarter: 2011Q2

REPORT INFORMATION
  Report Type: 
  Country: None (occurrence: None)
  Receive Date: 20110517
  Receipt Date: 20100826
  Transmission Date: 20111010
  Serious: No
  Sender: FDA-Public Use
  Company Number: US-NOVEN-ALL1-2010-04514

PATIENT
  Sex: Male
  Weight: 20.862 kg

DRUGS (7)
  1. INTUNIV [Suspect]
     Dosage: 2 MG, 1X/DAY:QD
     Route: 048
     Dates: start: 20100601, end: 20100601
  2. DAYTRANA [Suspect]
     Dosage: 15 MG, 1X/DAY:QD
     Route: 062
     Dates: start: 20100824
  3. INTUNIV [Suspect]
     Dosage: 1 MG, 1X/DAY:QD
     Route: 048
     Dates: start: 20100601, end: 20100601
  4. INTUNIV [Suspect]
     Dosage: 3 MG, 1X/DAY:QD
     Route: 048
     Dates: start: 20100601, end: 20100801
  5. INTUNIV [Suspect]
     Dosage: 4 MG, 1X/DAY:QD
     Route: 048
     Dates: start: 20100801, end: 20100823
  6. DAYTRANA [Suspect]
     Dosage: 30 MG, 1X/DAY:QD
     Route: 062
     Dates: start: 20080101, end: 20100601
  7. INTUNIV [Suspect]
     Dosage: 3 MG, 1X/DAY:QD
     Route: 048
     Dates: start: 20100824

REACTIONS (3)
  - WEIGHT INCREASED [None]
  - INSOMNIA [None]
  - FEELING ABNORMAL [None]
